FAERS Safety Report 13541065 (Version 2)
Quarter: 2017Q2

REPORT INFORMATION
  Report Type: Spontaneous
  Country: US (occurrence: US)
  Receive Date: 20170512
  Receipt Date: 20170614
  Transmission Date: 20170830
  Serious: No
  Sender: FDA-Public Use
  Company Number: US-TEVA-761787ACC

PATIENT
  Age: 48 Year
  Sex: Female

DRUGS (23)
  1. AMITRIPTYLINE [Concomitant]
     Active Substance: AMITRIPTYLINE
  2. DIGOX [Concomitant]
     Active Substance: DIGOXIN
  3. HYDROCO/APAP [Concomitant]
     Active Substance: ACETAMINOPHEN\HYDROCODONE
  4. LORAZEPAM. [Concomitant]
     Active Substance: LORAZEPAM
  5. MORPHINE [Concomitant]
     Active Substance: MORPHINE
  6. VENLAFAXINE [Concomitant]
     Active Substance: VENLAFAXINE HYDROCHLORIDE
  7. AMIODARONE [Concomitant]
     Active Substance: AMIODARONE
  8. FUROSEMIDE. [Concomitant]
     Active Substance: FUROSEMIDE
  9. PROMETHAZINE [Concomitant]
     Active Substance: PROMETHAZINE\PROMETHAZINE HYDROCHLORIDE
  10. AMPYRA [Concomitant]
     Active Substance: DALFAMPRIDINE
  11. LOSARTAN. [Concomitant]
     Active Substance: LOSARTAN
  12. MIRTAZAPINE. [Concomitant]
     Active Substance: MIRTAZAPINE
  13. CHLORZOXAZONE. [Concomitant]
     Active Substance: CHLORZOXAZONE
  14. GABAPENTIN. [Concomitant]
     Active Substance: GABAPENTIN
  15. LEVOTHYROXINE. [Concomitant]
     Active Substance: LEVOTHYROXINE
  16. TOPIRAMATE. [Concomitant]
     Active Substance: TOPIRAMATE
  17. COPAXONE [Suspect]
     Active Substance: GLATIRAMER ACETATE
     Indication: MULTIPLE SCLEROSIS
     Dosage: FORM STRENGTH: UNKNOWN
     Route: 065
  18. AMOX/KCLAV [Concomitant]
  19. CARVEDILOL. [Concomitant]
     Active Substance: CARVEDILOL
  20. POTASSIUM CHLORIDE. [Concomitant]
     Active Substance: POTASSIUM CHLORIDE
  21. SPIRONOLACTONE. [Concomitant]
     Active Substance: SPIRONOLACTONE
  22. TIZANIDINE. [Concomitant]
     Active Substance: TIZANIDINE
  23. SUMATRIPTAN. [Concomitant]
     Active Substance: SUMATRIPTAN

REACTIONS (2)
  - Urinary incontinence [Recovering/Resolving]
  - Fatigue [Not Recovered/Not Resolved]

NARRATIVE: CASE EVENT DATE: 20170327
